FAERS Safety Report 10063002 (Version 2)
Quarter: 2014Q2

REPORT INFORMATION
  Report Type: Spontaneous
  Country: US (occurrence: US)
  Receive Date: 20140407
  Receipt Date: 20140407
  Transmission Date: 20141212
  Serious: Yes (Hospitalization, Other)
  Sender: FDA-Public Use
  Company Number: US201104002730

PATIENT
  Age: 49 Year
  Sex: Male
  Weight: 122.45 kg

DRUGS (18)
  1. BYETTA PEN DISPOSABLE [Suspect]
     Indication: PRODUCT USED FOR UNKNOWN INDICATION
     Route: 058
     Dates: start: 20070118
  2. CARVEDILOL [Concomitant]
     Indication: BLOOD PRESSURE
  3. LISINOPRIL [Concomitant]
     Indication: BLOOD PRESSURE
  4. LANTUS [Concomitant]
     Indication: DIABETES MELLITUS
  5. GLYBURIDE [Concomitant]
     Indication: DIABETES MELLITUS
  6. ASPIRIN [Concomitant]
  7. DYAZIDE [Concomitant]
  8. GLUCOVANCE [Concomitant]
  9. LIPITOR [Concomitant]
  10. PRILOSEC [Concomitant]
  11. SPIRIVA [Concomitant]
  12. ZESTRIL [Concomitant]
  13. PHENERGAN [Concomitant]
     Indication: NAUSEA
  14. PROTONIX [Concomitant]
  15. DEMEROL [Concomitant]
  16. METFORMIN [Concomitant]
     Route: 048
  17. TRIAMTERENE + HCTZ [Concomitant]
     Dosage: 1DF: 37.5 / 25 UNITS NOS
     Route: 048
  18. OMEPRAZOLE [Concomitant]
     Route: 048

REACTIONS (3)
  - Pancreatitis acute [Unknown]
  - Cholecystitis chronic [Unknown]
  - Off label use [Recovered/Resolved]
